FAERS Safety Report 8062263-3 (Version None)
Quarter: 2012Q1

REPORT INFORMATION
  Report Type: 
  Country: None (occurrence: None)
  Receive Date: 20120113
  Receipt Date: 20120110
  Transmission Date: 20120608
  Serious: Yes (Hospitalization, Other)
  Sender: FDA-Public Use
  Company Number: 2011MA000275

PATIENT
  Age: 91 Year
  Sex: Female

DRUGS (3)
  1. MARCUMAR [Concomitant]
  2. MIRTAZAPINE [Suspect]
     Indication: DEPRESSION
     Dosage: 15 MG;QD;PO
     Route: 048
  3. MIRTAZAPINE [Suspect]
     Indication: DEPRESSION
     Dosage: 15 MG;UNK;PO
     Route: 048
     Dates: start: 20101028

REACTIONS (3)
  - HYPERKINESIA [None]
  - BALLISMUS [None]
  - AKATHISIA [None]
